FAERS Safety Report 20412945 (Version 1)
Quarter: 2022Q1

REPORT INFORMATION
  Report Type: Spontaneous
  Country: US (occurrence: US)
  Receive Date: 20220201
  Receipt Date: 20220201
  Transmission Date: 20220423
  Serious: No
  Sender: FDA-Public Use
  Company Number: US-BIOMARINAP-US-2022-140946

PATIENT
  Sex: Male
  Weight: 52.154 kg

DRUGS (1)
  1. KUVAN [Suspect]
     Active Substance: SAPROPTERIN DIHYDROCHLORIDE
     Indication: Phenylketonuria
     Dosage: 800 MILLIGRAM, QD
     Route: 048

REACTIONS (3)
  - COVID-19 [Unknown]
  - Ageusia [Unknown]
  - Anosmia [Unknown]
